FAERS Safety Report 5473849-4 (Version None)
Quarter: 2007Q3

REPORT INFORMATION
  Report Type: 
  Country: None (occurrence: None)
  Receive Date: 20070831
  Receipt Date: 20070612
  Transmission Date: 20080115
  Serious: No
  Sender: FDA-Public Use
  Company Number: 239372

PATIENT
  Age: 81 Year
  Sex: Female

DRUGS (5)
  1. LUCENTIS [Suspect]
     Indication: MACULAR DEGENERATION
     Dosage: 1/MONTH, INTRAVITREAL
     Dates: start: 20060901
  2. ISOSORBIDE MONONITRATE [Concomitant]
  3. ATENOLOL [Concomitant]
  4. LOTREL (AMLODIPINE BESYLATE, BENAZEPRIL HYDROCHLORIDE) [Concomitant]
  5. MINOXIDIL [Concomitant]

REACTIONS (1)
  - OCULAR HYPERAEMIA [None]
